FAERS Safety Report 10921635 (Version 1)
Quarter: 2015Q1

REPORT INFORMATION
  Report Type: Spontaneous
  Country: US (occurrence: None)
  Receive Date: 20150313
  Receipt Date: 20150313
  Transmission Date: 20150721
  Serious: Yes (Other)
  Sender: FDA-Public Use
  Company Number: None

PATIENT
  Age: 67 Year
  Sex: Female
  Weight: 39.92 kg

DRUGS (1)
  1. ACTEMRA [Suspect]
     Active Substance: TOCILIZUMAB
     Indication: RHEUMATOID ARTHRITIS
     Dosage: 20MG/ML = 8 ML EVERY FOUR WEEK
     Route: 042
     Dates: start: 20150223, end: 20150223

REACTIONS (3)
  - Rash [None]
  - Blood pressure decreased [None]
  - Dizziness [None]

NARRATIVE: CASE EVENT DATE: 20150216
